FAERS Safety Report 24459147 (Version 1)
Quarter: 2024Q4

REPORT INFORMATION
  Report Type: Spontaneous
  Country: US (occurrence: None)
  Receive Date: 20241017
  Receipt Date: 20241017
  Transmission Date: 20250115
  Serious: Yes (Death)
  Sender: Public
  Company Number: None

PATIENT
  Age: 66 Year
  Sex: Male

DRUGS (1)
  1. LENALIDOMIDE [Suspect]
     Active Substance: LENALIDOMIDE
     Indication: Plasma cell myeloma
     Dosage: FREQUENCY : DAILY;?
     Route: 048
     Dates: start: 20240206, end: 20240908

REACTIONS (5)
  - Acute febrile neutrophilic dermatosis [None]
  - Peripheral swelling [None]
  - Pseudomonal bacteraemia [None]
  - Septic shock [None]
  - Disseminated intravascular coagulation [None]

NARRATIVE: CASE EVENT DATE: 20240908
